FAERS Safety Report 8608632-1 (Version None)
Quarter: 2012Q3

REPORT INFORMATION
  Report Type: 
  Country: None (occurrence: None)
  Receive Date: 20120821
  Receipt Date: 20120222
  Transmission Date: 20120928
  Serious: Yes (Other)
  Sender: FDA-Public Use
  Company Number: CO-PFIZER INC-2012200135

PATIENT
  Age: 79 Year
  Sex: Male

DRUGS (4)
  1. ACETYLSALICYLIC ACID [Concomitant]
     Dosage: 100 MG, 1X/DAY
  2. LIPITOR [Suspect]
     Indication: DYSLIPIDAEMIA
     Dosage: 20 MG, 1X/DAY
  3. TRAMADOL HYDROCHLORIDE [Concomitant]
     Dosage: 10 DF, 4X/DAY
  4. LOSARTAN [Concomitant]
     Dosage: 50 MG, 1X/DAY

REACTIONS (1)
  - RENAL FAILURE CHRONIC [None]
